FAERS Safety Report 5149322-X (Version None)
Quarter: 2006Q4

REPORT INFORMATION
  Report Type: 
  Country: None (occurrence: None)
  Receive Date: 20061113
  Receipt Date: 20051104
  Transmission Date: 20070319
  Serious: No
  Sender: FDA-Public Use
  Company Number: 425349

PATIENT
  Sex: Male

DRUGS (2)
  1. COREG [Suspect]
     Indication: HYPERTENSION
     Dosage: 50MG TWICE PER DAY
     Route: 048
  2. UNKNOWN [Concomitant]

REACTIONS (2)
  - NO ADVERSE DRUG EFFECT [None]
  - PRESCRIBED OVERDOSE [None]
